FAERS Safety Report 21795877 (Version 1)
Quarter: 2022Q4

REPORT INFORMATION
  Report Type: Report from Study
  Country: US (occurrence: US)
  Receive Date: 20221229
  Receipt Date: 20221229
  Transmission Date: 20230113
  Serious: No
  Sender: FDA-Public Use
  Company Number: US-ABBVIE-4207600

PATIENT
  Sex: Female

DRUGS (1)
  1. RINVOQ [Suspect]
     Active Substance: UPADACITINIB
     Indication: Psoriasis
     Route: 048

REACTIONS (6)
  - Pain in extremity [Not Recovered/Not Resolved]
  - Peripheral swelling [Unknown]
  - Arthralgia [Not Recovered/Not Resolved]
  - Joint swelling [Unknown]
  - Musculoskeletal stiffness [Unknown]
  - Joint stiffness [Unknown]
